FAERS Safety Report 4908194-6 (Version None)
Quarter: 2006Q1

REPORT INFORMATION
  Report Type: 
  Country: None (occurrence: None)
  Receive Date: 20060210
  Receipt Date: 20051216
  Transmission Date: 20060701
  Serious: Yes (Hospitalization)
  Sender: FDA-Public Use
  Company Number: CH-JNJFOC-20051204295

PATIENT
  Age: 77 Year
  Sex: Female

DRUGS (6)
  1. HALDOL TROPFEN [Suspect]
     Indication: DRUG USE FOR UNKNOWN INDICATION
     Route: 048
     Dates: start: 20051101
  2. SURMONTIL [Concomitant]
     Route: 048
  3. NOVONORM [Concomitant]
     Route: 048
  4. METOPROLOL SUCCINATE [Concomitant]
     Route: 048
  5. METOPROLOL SUCCINATE [Concomitant]
     Route: 048
  6. NITRODERM [Concomitant]
     Route: 062

REACTIONS (5)
  - COUGH [None]
  - DISORIENTATION [None]
  - DYSPNOEA [None]
  - DYSTONIA [None]
  - EXTRAPYRAMIDAL DISORDER [None]
